FAERS Safety Report 7955351-0 (Version None)
Quarter: 2011Q4

REPORT INFORMATION
  Report Type: 
  Country: None (occurrence: None)
  Receive Date: 20111202
  Receipt Date: 20111128
  Transmission Date: 20120403
  Serious: Yes (Death, Other)
  Sender: FDA-Public Use
  Company Number: US-ELI_LILLY_AND_COMPANY-US201111008463

PATIENT
  Age: 61 Year
  Sex: Female

DRUGS (6)
  1. HUMALOG [Suspect]
     Indication: DIABETES MELLITUS
     Dosage: UNK, OTHER
     Route: 065
  2. HUMULIN N [Suspect]
     Dosage: UNK, OTHER
  3. HUMALOG [Suspect]
     Dosage: UNK, OTHER
     Route: 065
  4. SYMLIN [Concomitant]
  5. HUMALOG [Suspect]
     Dosage: UNK, OTHER
     Route: 065
  6. HUMULIN N [Suspect]
     Indication: DIABETES MELLITUS
     Dosage: UNK, OTHER

REACTIONS (2)
  - BREAST CANCER METASTATIC [None]
  - RENAL FAILURE [None]
